FAERS Safety Report 15966423 (Version 1)
Quarter: 2019Q1

REPORT INFORMATION
  Report Type: Spontaneous
  Country: US (occurrence: US)
  Receive Date: 20190215
  Receipt Date: 20190215
  Transmission Date: 20190418
  Serious: Yes (Hospitalization, Other)
  Sender: FDA-Public Use
  Company Number: US-TEVA-2019-US-1010223

PATIENT
  Sex: Female

DRUGS (9)
  1. AMLODIPINE [Concomitant]
     Active Substance: AMLODIPINE BESYLATE
  2. JAKAFI [Suspect]
     Active Substance: RUXOLITINIB
     Indication: MYELOFIBROSIS
     Dosage: 5 MILLIGRAM DAILY;
     Route: 048
     Dates: start: 2018
  3. DIAMOX SEQUELS [Suspect]
     Active Substance: ACETAZOLAMIDE
     Indication: INTRAOCULAR PRESSURE TEST ABNORMAL
     Route: 065
  4. PREDNISONE. [Concomitant]
     Active Substance: PREDNISONE
  5. CARVEDILOL. [Concomitant]
     Active Substance: CARVEDILOL
  6. ROPINIROLE. [Concomitant]
     Active Substance: ROPINIROLE
  7. CALCITRIOL. [Concomitant]
     Active Substance: CALCITRIOL
  8. LOSARTAN. [Concomitant]
     Active Substance: LOSARTAN
  9. EPOGEN [Concomitant]
     Active Substance: ERYTHROPOIETIN

REACTIONS (1)
  - Delirium [Unknown]
